FAERS Safety Report 12719350 (Version 1)
Quarter: 2016Q3

REPORT INFORMATION
  Report Type: Spontaneous
  Country: IT (occurrence: IT)
  Receive Date: 20160907
  Receipt Date: 20160907
  Transmission Date: 20161109
  Serious: Yes (Hospitalization)
  Sender: FDA-Public Use
  Company Number: IT-ROCHE-1826396

PATIENT
  Age: 58 Year
  Sex: Male

DRUGS (6)
  1. GAVISCON (ITALY) [Concomitant]
     Route: 048
  2. XANAX [Suspect]
     Active Substance: ALPRAZOLAM
     Indication: SUICIDE ATTEMPT
     Dosage: 0.75 MG/ML ORAL DROPS, SOLUTION 20 ML BOTTLE
     Route: 048
     Dates: start: 20160812, end: 20160812
  3. VALIUM [Suspect]
     Active Substance: DIAZEPAM
     Indication: SUICIDE ATTEMPT
     Dosage: 5 MG/ML ORAL DROPS, SOLUTION 20 ML BOTTLE
     Route: 048
     Dates: start: 20160812, end: 20160812
  4. ZOLOFT [Concomitant]
     Active Substance: SERTRALINE HYDROCHLORIDE
     Dosage: 50 MG HARD CAPSULES 15 CAPSULES
     Route: 048
  5. MIRTAZAPINE. [Concomitant]
     Active Substance: MIRTAZAPINE
     Route: 048
  6. PANTOPRAZOLE SODIUM. [Concomitant]
     Active Substance: PANTOPRAZOLE SODIUM
     Route: 048

REACTIONS (3)
  - Drug abuse [Unknown]
  - Suicide attempt [Unknown]
  - Toxicity to various agents [Unknown]

NARRATIVE: CASE EVENT DATE: 20160812
